FAERS Safety Report 6172688-9 (Version None)
Quarter: 2009Q2

REPORT INFORMATION
  Report Type: 
  Country: None (occurrence: None)
  Receive Date: 20090430
  Receipt Date: 20090421
  Transmission Date: 20091009
  Serious: Yes (Hospitalization)
  Sender: FDA-Public Use
  Company Number: JP-JNJFOC-20080700247

PATIENT
  Sex: Male
  Weight: 74 kg

DRUGS (12)
  1. RISPERDAL [Suspect]
     Route: 048
  2. RISPERDAL [Suspect]
     Route: 048
  3. RISPERDAL [Suspect]
     Route: 048
  4. RISPERDAL [Suspect]
     Route: 048
  5. RISPERDAL [Suspect]
     Route: 048
  6. RISPERDAL [Suspect]
     Indication: SCHIZOPHRENIA, PARANOID TYPE
     Route: 048
  7. WYPAX [Concomitant]
     Route: 048
  8. WYPAX [Concomitant]
     Route: 048
  9. WYPAX [Concomitant]
     Route: 048
  10. WYPAX [Concomitant]
     Route: 048
  11. DIAZEPAM [Concomitant]
     Route: 048
  12. LINTON [Concomitant]
     Route: 030

REACTIONS (2)
  - INTENTIONAL SELF-INJURY [None]
  - WATER INTOXICATION [None]
